FAERS Safety Report 7643828-7 (Version None)
Quarter: 2011Q3

REPORT INFORMATION
  Report Type: 
  Country: None (occurrence: None)
  Receive Date: 20110729
  Receipt Date: 20100916
  Transmission Date: 20111222
  Serious: No
  Sender: FDA-Public Use
  Company Number: US-GLAXOSMITHKLINE-A0851158A

PATIENT
  Age: 52 Year
  Sex: Male

DRUGS (4)
  1. IMITREX [Suspect]
     Indication: MIGRAINE
     Dosage: 100MG MONTHLY
     Route: 048
     Dates: start: 20020101
  2. PENICILLIN [Concomitant]
  3. TREXIMET [Suspect]
     Indication: MIGRAINE
     Route: 048
     Dates: start: 20100101
  4. INDOCIN [Concomitant]

REACTIONS (6)
  - NAUSEA [None]
  - CHILLS [None]
  - DIARRHOEA [None]
  - DRUG INEFFECTIVE [None]
  - MIGRAINE [None]
  - VOMITING [None]
